FAERS Safety Report 6327969-2 (Version None)
Quarter: 2009Q3

REPORT INFORMATION
  Report Type: 
  Country: None (occurrence: None)
  Receive Date: 20090824
  Receipt Date: 20090813
  Transmission Date: 20100115
  Serious: Yes (Life-Threatening)
  Sender: FDA-Public Use
  Company Number: GXKR2009TW09183

PATIENT
  Age: 37 Year
  Sex: Female

DRUGS (1)
  1. METHYLPREDNISOLONE 4MG TAB [Suspect]
     Indication: SPINAL CORD INJURY CERVICAL
     Dosage: 30 MG/KG OVER 15 MINUTES (BOLUS DOSE), INTRAVENOUS; 5.4 MG/KG/H FOR 23 HOURS (MAINTENANCE), INFUSION
     Route: 042

REACTIONS (7)
  - HAEMODIALYSIS [None]
  - PNEUMONIA [None]
  - REFUSAL OF TREATMENT BY PATIENT [None]
  - TUMOUR LYSIS SYNDROME [None]
  - UNRESPONSIVE TO STIMULI [None]
  - URATE NEPHROPATHY [None]
  - VENTRICULAR FIBRILLATION [None]
